FAERS Safety Report 16792469 (Version 3)
Quarter: 2020Q1

REPORT INFORMATION
  Report Type: Spontaneous
  Country: US (occurrence: US)
  Receive Date: 20190910
  Receipt Date: 20200206
  Transmission Date: 20200409
  Serious: No
  Sender: FDA-Public Use
  Company Number: US-JNJFOC-20190909341

PATIENT
  Sex: Male

DRUGS (2)
  1. ZYTIGA [Suspect]
     Active Substance: ABIRATERONE ACETATE
     Route: 048
  2. ZYTIGA [Suspect]
     Active Substance: ABIRATERONE ACETATE
     Indication: PRODUCT USED FOR UNKNOWN INDICATION
     Route: 048

REACTIONS (8)
  - Paraesthesia [Unknown]
  - Peripheral swelling [Unknown]
  - Dysphagia [Unknown]
  - Incorrect dose administered [Unknown]
  - Paranasal sinus discomfort [Unknown]
  - Eye pain [Unknown]
  - Dysgeusia [Unknown]
  - Dyspepsia [Unknown]
